FAERS Safety Report 7827572-9 (Version None)
Quarter: 2011Q4

REPORT INFORMATION
  Report Type: 
  Country: None (occurrence: None)
  Receive Date: 20111020
  Receipt Date: 20111016
  Transmission Date: 20120403
  Serious: Yes (Death, Hospitalization, Other)
  Sender: FDA-Public Use
  Company Number: PHHY2011NL91444

PATIENT
  Age: 66 Year
  Sex: Male

DRUGS (2)
  1. ZOLEDRONIC ACID [Suspect]
  2. DOCETAXEL [Concomitant]

REACTIONS (10)
  - NORMOCHROMIC NORMOCYTIC ANAEMIA [None]
  - THROMBOTIC THROMBOCYTOPENIC PURPURA [None]
  - BLOOD CREATININE INCREASED [None]
  - THROMBOCYTOPENIA [None]
  - HAEMOGLOBIN DECREASED [None]
  - DEATH [None]
  - RENAL FAILURE [None]
  - MENTAL DISORDER [None]
  - HAEMOLYTIC URAEMIC SYNDROME [None]
  - FATIGUE [None]
